FAERS Safety Report 7748763-1 (Version None)
Quarter: 2011Q3

REPORT INFORMATION
  Report Type: 
  Country: None (occurrence: None)
  Receive Date: 20110913
  Receipt Date: 20110913
  Transmission Date: 20111222
  Serious: Yes (Hospitalization)
  Sender: FDA-Public Use
  Company Number: None

PATIENT
  Age: 56 Year
  Sex: Female
  Weight: 58.7408 kg

DRUGS (3)
  1. KEPPRA [Concomitant]
  2. TEMOZOLOMIDE [Suspect]
     Indication: GLIOBLASTOMA
     Dates: start: 20100415, end: 20100708
  3. FAMOTIDINE [Concomitant]

REACTIONS (10)
  - NAUSEA [None]
  - DRUG DOSE OMISSION [None]
  - VOMITING [None]
  - PAIN [None]
  - MUSCLE TWITCHING [None]
  - CONFUSIONAL STATE [None]
  - BRAIN MIDLINE SHIFT [None]
  - GAZE PALSY [None]
  - UNRESPONSIVE TO STIMULI [None]
  - BRAIN OEDEMA [None]
